FAERS Safety Report 25841523 (Version 1)
Quarter: 2025Q3

REPORT INFORMATION
  Report Type: Spontaneous
  Country: EU (occurrence: EU)
  Receive Date: 20250924
  Receipt Date: 20250924
  Transmission Date: 20251021
  Serious: Yes (Death, Other)
  Sender: ORGANON
  Company Number: EU-009507513-1707ESP012411

PATIENT
  Age: 40 Year
  Sex: Male

DRUGS (7)
  1. MIRTAZAPINE [Suspect]
     Active Substance: MIRTAZAPINE
     Route: 048
  2. MORPHINE [Suspect]
     Active Substance: MORPHINE
  3. PREGABALIN [Suspect]
     Active Substance: PREGABALIN
  4. ALPRAZOLAM [Suspect]
     Active Substance: ALPRAZOLAM
  5. CLONAZEPAM [Suspect]
     Active Substance: CLONAZEPAM
  6. LEVOMEPROMAZINE [Suspect]
     Active Substance: LEVOMEPROMAZINE
  7. ALCOHOL [Suspect]
     Active Substance: ALCOHOL

REACTIONS (1)
  - Pulmonary haemorrhage [Fatal]

NARRATIVE: CASE EVENT DATE: 20150101
